FAERS Safety Report 7149373-X (Version None)
Quarter: 2010Q4

REPORT INFORMATION
  Report Type: 
  Country: None (occurrence: None)
  Receive Date: 20101209
  Receipt Date: 20101019
  Transmission Date: 20110411
  Serious: No
  Sender: FDA-Public Use
  Company Number: US-KINGPHARMUSA00001-K201001319

PATIENT
  Sex: Female
  Weight: 72.562 kg

DRUGS (10)
  1. EMBEDA [Suspect]
     Indication: NECK PAIN
     Dosage: 20 MG, UNK
     Route: 048
     Dates: start: 20100923, end: 20100101
  2. EMBEDA [Suspect]
     Dosage: UNK
     Route: 048
     Dates: start: 20100101
  3. ZOLOFT [Suspect]
     Indication: DEPRESSION
     Dosage: 50 MG, UNK
     Route: 048
     Dates: start: 20100923, end: 20100101
  4. TEGRETOL [Concomitant]
  5. TIZANIDINE [Concomitant]
  6. METHOTREXATE [Concomitant]
  7. MOCLOBEMIDE [Concomitant]
  8. ACYCLOVIR SODIUM [Concomitant]
  9. PREDNISONE [Concomitant]
     Dosage: 5 MG, PRN
  10. AMBIEN [Concomitant]

REACTIONS (1)
  - WEIGHT INCREASED [None]
